FAERS Safety Report 5505136-X (Version None)
Quarter: 2007Q4

REPORT INFORMATION
  Report Type: 
  Country: None (occurrence: None)
  Receive Date: 20071102
  Receipt Date: 20071022
  Transmission Date: 20080405
  Serious: Yes (Death, Hospitalization)
  Sender: FDA-Public Use
  Company Number: GB-AMGEN-UK233235

PATIENT
  Sex: Male

DRUGS (10)
  1. PANITUMUMAB [Suspect]
     Indication: COLORECTAL CANCER
     Route: 042
     Dates: start: 20070529, end: 20070619
  2. IRINOTECAN HCL [Suspect]
     Route: 042
     Dates: start: 20070529, end: 20070619
  3. SERETIDE [Concomitant]
  4. ALBUTEROL [Concomitant]
  5. MAGNESIUM SULFATE [Concomitant]
  6. ZOPICLONE [Concomitant]
  7. MORPHINE SULFATE [Concomitant]
  8. DOXAZOSIN MESYLATE [Concomitant]
  9. SIMVASTATIN [Concomitant]
  10. ESOMEPRAZOLE [Concomitant]

REACTIONS (1)
  - INTERSTITIAL LUNG DISEASE [None]
